FAERS Safety Report 9582228 (Version 1)
Quarter: 2013Q4

REPORT INFORMATION
  Report Type: Spontaneous
  Country: US (occurrence: US)
  Receive Date: 20131002
  Receipt Date: 20131002
  Transmission Date: 20140711
  Serious: No
  Sender: FDA-Public Use
  Company Number: US-AMGEN-USASP2013039528

PATIENT
  Age: 31 Year
  Sex: Female
  Weight: 135.15 kg

DRUGS (7)
  1. ENBREL [Suspect]
     Indication: PRODUCT USED FOR UNKNOWN INDICATION
     Dosage: 50 MG, QWK
     Route: 058
     Dates: start: 20130507
  2. SULFASALAZIN [Concomitant]
     Dosage: 500 MG, UNK
  3. METHOTREXATE [Concomitant]
     Dosage: 20 MG, UNK
  4. VITAMIN D                          /00107901/ [Concomitant]
     Dosage: 1000 UNIT, UNK
  5. ULTRAM                             /00599202/ [Concomitant]
     Dosage: 50 MG, UNK
  6. FOLIC ACID [Concomitant]
     Dosage: UNK
  7. NEURONTIN [Concomitant]
     Dosage: 300 MG, UNK

REACTIONS (2)
  - Pharyngitis [Unknown]
  - Rhinitis [Unknown]
